FAERS Safety Report 6711212-6 (Version None)
Quarter: 2010Q2

REPORT INFORMATION
  Report Type: 
  Country: None (occurrence: None)
  Receive Date: 20100429
  Receipt Date: 20090923
  Transmission Date: 20101027
  Serious: Yes (Other)
  Sender: FDA-Public Use
  Company Number: 2009AM000311

PATIENT
  Age: 35 Year
  Sex: Female
  Weight: 45.3597 kg

DRUGS (4)
  1. SYMLIN [Suspect]
     Indication: TYPE 1 DIABETES MELLITUS
     Dosage: 60 MCG;TID;SC; 15 MCG;TID; SC
     Route: 058
     Dates: start: 20090101, end: 20090101
  2. SYMLIN [Suspect]
     Indication: TYPE 1 DIABETES MELLITUS
     Dosage: 60 MCG;TID;SC; 15 MCG;TID; SC
     Route: 058
     Dates: start: 20090101, end: 20090501
  3. LANTUS (CON.) [Concomitant]
  4. HUMALOG [Suspect]
     Indication: TYPE 1 DIABETES MELLITUS

REACTIONS (1)
  - HYPOGLYCAEMIC UNCONSCIOUSNESS [None]
